FAERS Safety Report 6370357-3 (Version None)
Quarter: 2009Q3

REPORT INFORMATION
  Report Type: 
  Country: None (occurrence: None)
  Receive Date: 20090923
  Receipt Date: 20090810
  Transmission Date: 20100115
  Serious: No
  Sender: FDA-Public Use
  Company Number: US-BAYER-200929896NA

PATIENT
  Age: 19 Year
  Sex: Female

DRUGS (1)
  1. YAZ [Suspect]
     Indication: CONTRACEPTION
     Dosage: TOTAL DAILY DOSE: 1 DF  UNIT DOSE: 1 DF
     Dates: start: 20070101

REACTIONS (2)
  - NO ADVERSE EVENT [None]
  - VAGINAL HAEMORRHAGE [None]
